FAERS Safety Report 13649900 (Version 1)
Quarter: 2017Q2

REPORT INFORMATION
  Report Type: Spontaneous
  Country: US (occurrence: US)
  Receive Date: 20170613
  Receipt Date: 20170613
  Transmission Date: 20170830
  Serious: No
  Sender: FDA-Public Use
  Company Number: None

PATIENT
  Age: 42 Year
  Sex: Male
  Weight: 92.7 kg

DRUGS (1)
  1. BUPRENORPHINE/NALOXONE [Suspect]
     Active Substance: BUPRENORPHINE\NALOXONE
     Indication: SUBSTANCE USE DISORDER
     Route: 060
     Dates: start: 20170516, end: 20170613

REACTIONS (11)
  - Impaired work ability [None]
  - Headache [None]
  - Loss of personal independence in daily activities [None]
  - Blood pressure increased [None]
  - Muscle tightness [None]
  - Dizziness [None]
  - Feeling abnormal [None]
  - Product substitution issue [None]
  - Nausea [None]
  - Flushing [None]
  - Discomfort [None]

NARRATIVE: CASE EVENT DATE: 20170516
